FAERS Safety Report 5451254-4 (Version None)
Quarter: 2007Q3

REPORT INFORMATION
  Report Type: 
  Country: None (occurrence: None)
  Receive Date: 20070911
  Receipt Date: 20070911
  Transmission Date: 20080115
  Serious: Yes (Hospitalization)
  Sender: FDA-Public Use
  Company Number: None

PATIENT
  Sex: Female

DRUGS (14)
  1. IRINOTECAN HCL [Suspect]
     Indication: GLIOBLASTOMA MULTIFORME
     Dosage: 300MG/M2 DAY 1, 8,22,29 IV
     Route: 042
     Dates: start: 20070802
  2. IRINOTECAN HCL [Suspect]
     Indication: GLIOBLASTOMA MULTIFORME
     Dosage: 300MG/M2 DAY 1, 8,22,29 IV
     Route: 042
     Dates: start: 20070813
  3. IRINOTECAN HCL [Suspect]
     Indication: GLIOBLASTOMA MULTIFORME
     Dosage: 300MG/M2 DAY 1, 8,22,29 IV
     Route: 042
     Dates: start: 20070827
  4. TEMODAR [Suspect]
     Indication: GLIOBLASTOMA MULTIFORME
     Dosage: 250 MG/M2 DAYS 1-5 PO
     Route: 048
     Dates: start: 20070802, end: 20070806
  5. PROTONIX [Concomitant]
  6. KEPPRA [Concomitant]
  7. LAXATIVE [Concomitant]
  8. DEXAMETHASONE 0.5MG TAB [Concomitant]
  9. PHENOBARBITAL TAB [Concomitant]
  10. FIBER CAPSULES [Concomitant]
  11. DECADRON [Concomitant]
  12. TYLENOL (CAPLET) [Concomitant]
  13. ATIVAN [Concomitant]
  14. TYLENOL [Concomitant]

REACTIONS (1)
  - HOSPITALISATION [None]
